FAERS Safety Report 19442876 (Version 1)
Quarter: 2021Q2

REPORT INFORMATION
  Report Type: Spontaneous
  Country: US (occurrence: US)
  Receive Date: 20210619
  Receipt Date: 20210619
  Transmission Date: 20210717
  Serious: Yes (Hospitalization)
  Sender: FDA-Public Use
  Company Number: None

PATIENT
  Age: 61 Year
  Sex: Female
  Weight: 66.6 kg

DRUGS (10)
  1. XARELTO [Suspect]
     Active Substance: RIVAROXABAN
     Indication: ANTICOAGULANT THERAPY
     Dosage: QUANTITY:1 TABLET(S);?
     Route: 048
     Dates: start: 20210115, end: 20210129
  2. LISINOPRIL/HCTZ [Concomitant]
     Active Substance: HYDROCHLOROTHIAZIDE\LISINOPRIL
  3. MOMETASONE NASAL [Concomitant]
     Active Substance: MOMETASONE FUROATE
  4. DIGEST GOLD [Concomitant]
  5. SERTRALINE [Concomitant]
     Active Substance: SERTRALINE HYDROCHLORIDE
  6. WIXELA INHUB [Concomitant]
     Active Substance: FLUTICASONE PROPIONATE\SALMETEROL XINAFOATE
  7. MONTELUKAST [Concomitant]
     Active Substance: MONTELUKAST SODIUM
  8. MVI [Concomitant]
     Active Substance: VITAMINS
  9. VIT D [Concomitant]
     Active Substance: VITAMIN D NOS
  10. VISBIOME PROBIOTICS [Concomitant]

REACTIONS (8)
  - Parosmia [None]
  - Haemoglobin decreased [None]
  - Hepatic enzyme increased [None]
  - Jaundice [None]
  - Asthenia [None]
  - Abdominal pain upper [None]
  - Nausea [None]
  - Hypophagia [None]

NARRATIVE: CASE EVENT DATE: 20210201
